FAERS Safety Report 6310297-9 (Version None)
Quarter: 2009Q3

REPORT INFORMATION
  Report Type: 
  Country: None (occurrence: None)
  Receive Date: 20090814
  Receipt Date: 20090806
  Transmission Date: 20100115
  Serious: Yes (Hospitalization, Other)
  Sender: FDA-Public Use
  Company Number: PHHY2009BR33078

PATIENT
  Age: 80 Year
  Sex: Male

DRUGS (2)
  1. EXELON [Suspect]
     Dosage: 9MG/5CM2
     Route: 062
     Dates: start: 20080401
  2. EXELON [Suspect]
     Dosage: 18MG/10CM2
     Route: 062
     Dates: end: 20090201

REACTIONS (4)
  - ACUTE PULMONARY OEDEMA [None]
  - CONDITION AGGRAVATED [None]
  - GAIT DISTURBANCE [None]
  - MEMORY IMPAIRMENT [None]
